FAERS Safety Report 9153736 (Version 2)
Quarter: 2013Q1

REPORT INFORMATION
  Report Type: Spontaneous
  Country: US (occurrence: None)
  Receive Date: 20130207
  Receipt Date: 20130208
  Transmission Date: 20140127
  Serious: Yes (Other)
  Sender: FDA-Public Use
  Company Number: 1590774

PATIENT
  Sex: Female

DRUGS (4)
  1. BLEOMYCIN SULFATE [Suspect]
     Indication: HODGKIN^S DISEASE
  2. DACARBAZINE [Suspect]
     Indication: HODGKIN^S DISEASE
  3. VINBLASTINE [Suspect]
  4. DOXORUBICIN [Suspect]
     Indication: HODGKIN^S DISEASE

REACTIONS (4)
  - Stillbirth [None]
  - Maternal exposure during pregnancy [None]
  - Twin pregnancy [None]
  - Potentiating drug interaction [None]
